FAERS Safety Report 17946315 (Version 2)
Quarter: 2020Q3

REPORT INFORMATION
  Report Type: Spontaneous
  Country: GB (occurrence: GB)
  Receive Date: 20200625
  Receipt Date: 20200710
  Transmission Date: 20201103
  Serious: Yes (Hospitalization, Other)
  Sender: FDA-Public Use
  Company Number: NVSC2020GB172702

PATIENT
  Age: 58 Year
  Sex: Male

DRUGS (3)
  1. SOMATULINE [Suspect]
     Active Substance: LANREOTIDE ACETATE
     Indication: PANCREATIC CARCINOMA
     Dosage: 120 MG, 28D (SOMATULINE AUTOGEL 120MG/0.5ML)
     Route: 058
  2. SOMATULINE [Suspect]
     Active Substance: LANREOTIDE ACETATE
     Indication: NEUROENDOCRINE TUMOUR
     Dosage: 120 MG, 28D (SOMATULINE AUTOGEL 120MG/0.5ML)
     Route: 058
  3. EVEROLIMUS. [Suspect]
     Active Substance: EVEROLIMUS
     Indication: PRODUCT USED FOR UNKNOWN INDICATION
     Dosage: UNK
     Route: 065

REACTIONS (11)
  - Steatorrhoea [Unknown]
  - Off label use [Unknown]
  - Device occlusion [Unknown]
  - Biliary sepsis [Unknown]
  - Diarrhoea [Recovered/Resolved]
  - Postoperative wound infection [Unknown]
  - Acquired phimosis [Unknown]
  - Dry skin [Unknown]
  - Haemorrhoids [Unknown]
  - Influenza like illness [Unknown]
  - Blood glucose increased [Recovered/Resolved]

NARRATIVE: CASE EVENT DATE: 2020
